FAERS Safety Report 7677615-0 (Version None)
Quarter: 2011Q3

REPORT INFORMATION
  Report Type: 
  Country: None (occurrence: None)
  Receive Date: 20110811
  Receipt Date: 20110808
  Transmission Date: 20111222
  Serious: Yes (Death)
  Sender: FDA-Public Use
  Company Number: FR-SANOFI-AVENTIS-2011SA051161

PATIENT
  Age: 77 Year
  Sex: Male

DRUGS (2)
  1. PLACEBO [Suspect]
     Indication: THROMBOSIS PROPHYLAXIS
     Route: 065
     Dates: start: 20110122, end: 20110215
  2. ENOXAPARIN SODIUM [Suspect]
     Indication: THROMBOSIS PROPHYLAXIS
     Route: 058
     Dates: start: 20110122, end: 20110215

REACTIONS (2)
  - CARDIAC FAILURE [None]
  - PULMONARY EMBOLISM [None]
